FAERS Safety Report 7451395-6 (Version None)
Quarter: 2011Q2

REPORT INFORMATION
  Report Type: 
  Country: None (occurrence: None)
  Receive Date: 20110502
  Receipt Date: 20110427
  Transmission Date: 20111010
  Serious: Yes (Death, Hospitalization)
  Sender: FDA-Public Use
  Company Number: DE-PFIZER INC-2011091234

PATIENT
  Age: 64 Year
  Sex: Female

DRUGS (7)
  1. TORISEL [Suspect]
     Indication: HEAD AND NECK CANCER
     Dosage: 25 MG, WEEKLY
     Route: 042
     Dates: start: 20110228, end: 20110405
  2. PANTOZOL [Concomitant]
     Dosage: UNK
     Dates: start: 20101005
  3. ASPIRIN [Suspect]
     Dosage: 100 MG, 1X/DAY
     Dates: start: 20101005
  4. SIMVASTATIN [Concomitant]
     Dosage: UNK
     Dates: start: 20101005
  5. MORPHINE [Concomitant]
     Dosage: UNK
     Dates: start: 20101005
  6. NEXIUM [Concomitant]
     Dosage: UNK
     Dates: start: 20101005
  7. NOVALGIN [Concomitant]
     Dosage: UNK
     Dates: start: 20101005

REACTIONS (5)
  - PNEUMONIA [None]
  - RESPIRATORY FAILURE [None]
  - ANAEMIA [None]
  - SOMNOLENCE [None]
  - MELAENA [None]
